FAERS Safety Report 8165576-X (Version None)
Quarter: 2012Q1

REPORT INFORMATION
  Report Type: 
  Country: None (occurrence: None)
  Receive Date: 20120227
  Receipt Date: 20120217
  Transmission Date: 20120608
  Serious: Yes (Hospitalization)
  Sender: FDA-Public Use
  Company Number: GB-UCBSA-051871

PATIENT
  Sex: Female

DRUGS (8)
  1. VIMPAT [Suspect]
     Dosage: 150 MG
  2. CLOBAZAM [Concomitant]
     Indication: EPILEPSY
     Dosage: 10 MG IN THE MORNING, 5 MG AT NIGHT
  3. PAINKILLERS [Suspect]
     Indication: HEADACHE
  4. TOPIRAMATE [Concomitant]
     Indication: EPILEPSY
     Dosage: 75 MG IN THE MORNING, 50 MG AT NIGHT
  5. NAPROXEN [Concomitant]
  6. ANTIBIOTICS [Concomitant]
  7. VIMPAT [Suspect]
     Indication: EPILEPSY
     Dosage: 200 MG IN THE MORNING AND 200 MG IN THE EVENING
  8. VIMPAT [Suspect]
     Dosage: 100MG

REACTIONS (12)
  - HEADACHE [None]
  - DRUG WITHDRAWAL HEADACHE [None]
  - OVERDOSE [None]
  - OTITIS MEDIA [None]
  - PRURITUS [None]
  - TINNITUS [None]
  - EAR PAIN [None]
  - MIDDLE EAR EFFUSION [None]
  - HIDRADENITIS [None]
  - NASOPHARYNGITIS [None]
  - TONSILLAR INFLAMMATION [None]
  - OROPHARYNGEAL PAIN [None]
